FAERS Safety Report 10427869 (Version 4)
Quarter: 2015Q1

REPORT INFORMATION
  Report Type: Spontaneous
  Country: JP (occurrence: JP)
  Receive Date: 20140903
  Receipt Date: 20150331
  Transmission Date: 20150720
  Serious: Yes (Death)
  Sender: FDA-Public Use
  Company Number: JP-BAYER-2014-127484

PATIENT
  Age: 75 Year
  Sex: Female
  Weight: 38 kg

DRUGS (16)
  1. STIVARGA [Suspect]
     Active Substance: REGORAFENIB
     Indication: COLON CANCER
     Dosage: 120 MG/DAY ON FOR 3 WEEKS AND OFF FOR 1 WEEK.
     Route: 048
     Dates: start: 20140808, end: 20140817
  2. PARIET [Concomitant]
     Active Substance: RABEPRAZOLE SODIUM
     Route: 048
  3. TRAZENTA [Concomitant]
     Active Substance: LINAGLIPTIN
     Route: 048
  4. LYRICA [Concomitant]
     Active Substance: PREGABALIN
     Route: 048
  5. GLYCYRON [GLYCYRRHIZIC ACID] [Concomitant]
     Route: 048
  6. GASLON N [Concomitant]
     Route: 048
  7. LASIX [Concomitant]
     Active Substance: FUROSEMIDE
  8. HYPEN [Concomitant]
     Active Substance: ETODOLAC
     Route: 048
  9. WARFARIN [Concomitant]
     Active Substance: WARFARIN
     Route: 048
  10. MIGLITOL. [Concomitant]
     Active Substance: MIGLITOL
     Route: 048
  11. DIOVAN [Concomitant]
     Active Substance: VALSARTAN
     Route: 048
  12. EPADEL [Concomitant]
     Active Substance: ICOSAPENT
     Route: 048
  13. ALFAROL [Concomitant]
     Active Substance: ALFACALCIDOL
     Route: 048
  14. PROMAC [POLAPREZINC] [Concomitant]
     Active Substance: POLAPREZINC
     Route: 048
  15. ALDACTONE [Concomitant]
     Active Substance: SPIRONOLACTONE
     Route: 048
  16. RINDERON V [Concomitant]
     Active Substance: BETAMETHASONE VALERATE

REACTIONS (4)
  - Colon cancer [Fatal]
  - Disseminated intravascular coagulation [Fatal]
  - Malaise [Not Recovered/Not Resolved]
  - Dysphonia [Not Recovered/Not Resolved]

NARRATIVE: CASE EVENT DATE: 20140810
